FAERS Safety Report 23627802 (Version 1)
Quarter: 2024Q1

REPORT INFORMATION
  Report Type: Spontaneous
  Country: TR (occurrence: TR)
  Receive Date: 20240313
  Receipt Date: 20240313
  Transmission Date: 20240409
  Serious: Yes (Hospitalization)
  Sender: FDA-Public Use
  Company Number: TR-ABBVIE-5677405

PATIENT

DRUGS (1)
  1. RINVOQ [Suspect]
     Active Substance: UPADACITINIB
     Indication: Colitis ulcerative
     Dosage: FORM STRENGTH: 15MG, 3 TABLET
     Route: 048

REACTIONS (5)
  - C-reactive protein increased [Not Recovered/Not Resolved]
  - Leukocytosis [Not Recovered/Not Resolved]
  - Hepatic mass [Not Recovered/Not Resolved]
  - Thrombosis [Not Recovered/Not Resolved]
  - Neutrophilia [Not Recovered/Not Resolved]
